FAERS Safety Report 6153663-7 (Version None)
Quarter: 2009Q2

REPORT INFORMATION
  Report Type: 
  Country: None (occurrence: None)
  Receive Date: 20090413
  Receipt Date: 20090409
  Transmission Date: 20091009
  Serious: Yes (Disabling)
  Sender: FDA-Public Use
  Company Number: IT-MERCK-0904ITA00001

PATIENT
  Age: 4 Year
  Sex: Male

DRUGS (4)
  1. SINGULAIR [Suspect]
     Indication: BRONCHOSPASM
     Route: 048
     Dates: start: 20071201, end: 20090227
  2. FLUTICASONE PROPIONATE [Concomitant]
     Route: 065
  3. ALBUTEROL [Concomitant]
     Route: 065
  4. BUDESONIDE [Concomitant]
     Route: 065

REACTIONS (3)
  - HYPERHIDROSIS [None]
  - IRRITABILITY [None]
  - MUSCLE SPASMS [None]
